FAERS Safety Report 21916673 (Version 2)
Quarter: 2023Q1

REPORT INFORMATION
  Report Type: Spontaneous
  Country: CO (occurrence: CO)
  Receive Date: 20230126
  Receipt Date: 20230203
  Transmission Date: 20230418
  Serious: Yes (Hospitalization)
  Sender: FDA-Public Use
  Company Number: CO-TAKEDA-2023TUS008295

PATIENT
  Age: 57 Year
  Sex: Male
  Weight: 87 kg

DRUGS (1)
  1. ICLUSIG [Suspect]
     Active Substance: PONATINIB
     Indication: Chronic myeloid leukaemia
     Dosage: 45 MILLIGRAM, QD
     Route: 048
     Dates: start: 20190926, end: 20230118

REACTIONS (1)
  - Leukocytosis [Recovering/Resolving]

NARRATIVE: CASE EVENT DATE: 20230113
